FAERS Safety Report 15971715 (Version 1)
Quarter: 2019Q1

REPORT INFORMATION
  Report Type: Spontaneous
  Country: US (occurrence: US)
  Receive Date: 20190215
  Receipt Date: 20190215
  Transmission Date: 20190418
  Serious: No
  Sender: FDA-Public Use
  Company Number: US-AMAG PHARMACEUTICALS, INC.-AMAG201806050

PATIENT
  Age: 34 Year
  Sex: Female
  Weight: 73.92 kg

DRUGS (2)
  1. MAKENA [Suspect]
     Active Substance: HYDROXYPROGESTERONE CAPROATE
     Indication: PREMATURE DELIVERY
     Dosage: 250 MG/ML, WEEKLY
     Route: 058
     Dates: start: 20180925
  2. PRENATAL VITAMINS [Concomitant]
     Active Substance: VITAMINS
     Indication: VITAMIN SUPPLEMENTATION
     Dosage: UNK, QD
     Route: 065
     Dates: start: 201809

REACTIONS (3)
  - Malaise [Unknown]
  - Product administered at inappropriate site [Unknown]
  - Injection site cellulitis [Not Recovered/Not Resolved]

NARRATIVE: CASE EVENT DATE: 20181030
